FAERS Safety Report 7793447-7 (Version None)
Quarter: 2011Q4

REPORT INFORMATION
  Report Type: 
  Country: None (occurrence: None)
  Receive Date: 20111003
  Receipt Date: 20110923
  Transmission Date: 20120403
  Serious: Yes (Other)
  Sender: FDA-Public Use
  Company Number: PHHY2011GB86459

PATIENT
  Sex: Female

DRUGS (2)
  1. CETIRIZINE HCL [Suspect]
     Indication: HYPERSENSITIVITY
     Dosage: 10 MG, QD
     Route: 048
     Dates: start: 20061116, end: 20110620
  2. TERBUTALINE [Concomitant]
     Indication: ASTHMA
     Dosage: 500 MG, PRN
     Dates: start: 19970101, end: 20110830

REACTIONS (2)
  - COMPLEX PARTIAL SEIZURES [None]
  - EPILEPSY [None]
